FAERS Safety Report 23663631 (Version 1)
Quarter: 2024Q1

REPORT INFORMATION
  Report Type: Spontaneous
  Country: US (occurrence: US)
  Receive Date: 20240322
  Receipt Date: 20240322
  Transmission Date: 20240410
  Serious: No
  Sender: FDA-Public Use
  Company Number: US-PFIZER INC-PV202400037850

PATIENT
  Age: 45 Year
  Sex: Female

DRUGS (4)
  1. PROTONIX [Suspect]
     Active Substance: PANTOPRAZOLE SODIUM
     Dosage: UNK
     Dates: start: 202401, end: 2024
  2. CAPLYTA [Suspect]
     Active Substance: LUMATEPERONE
     Indication: Bipolar I disorder
     Dosage: 10.5 MG, ORALLY, FOR RAPID CYCLE
     Route: 048
     Dates: start: 202401
  3. CAPLYTA [Suspect]
     Active Substance: LUMATEPERONE
     Indication: Hallucination, auditory
     Dosage: 21 MG, ORALLY, 1X/DAY
     Route: 048
     Dates: start: 202401, end: 2024
  4. CAPLYTA [Suspect]
     Active Substance: LUMATEPERONE
     Dosage: 10.5 MG, ORALLY, FOR RAPID CYCLE
     Route: 048
     Dates: start: 20240311

REACTIONS (4)
  - Photophobia [Not Recovered/Not Resolved]
  - Migraine [Recovered/Resolved]
  - Nausea [Unknown]
  - Head discomfort [Unknown]

NARRATIVE: CASE EVENT DATE: 20240101
